FAERS Safety Report 8189177-2 (Version None)
Quarter: 2012Q1

REPORT INFORMATION
  Report Type: 
  Country: None (occurrence: None)
  Receive Date: 20120307
  Receipt Date: 20120224
  Transmission Date: 20120608
  Serious: Yes (Hospitalization)
  Sender: FDA-Public Use
  Company Number: GB-PAR PHARMACEUTICAL, INC-2012SCPR004239

PATIENT

DRUGS (4)
  1. RAMIPRIL [Concomitant]
     Indication: PRODUCT USED FOR UNKNOWN INDICATION
     Dosage: 2.5MG DAILY
     Route: 065
  2. FLUOXETINE HCL [Suspect]
     Indication: PRODUCT USED FOR UNKNOWN INDICATION
     Dosage: 20 MG, / DAY
     Route: 048
  3. TRIMETHOPRIM [Concomitant]
     Indication: URINARY TRACT INFECTION
     Dosage: 100MG DAILY
     Route: 065
  4. CLARITHROMYCIN [Interacting]
     Indication: RESPIRATORY TRACT INFECTION
     Dosage: UNK, UNKNOWN
     Route: 048

REACTIONS (3)
  - ATRIAL FIBRILLATION [None]
  - SEROTONIN SYNDROME [None]
  - DRUG INTERACTION [None]
